FAERS Safety Report 17788801 (Version 1)
Quarter: 2020Q2

REPORT INFORMATION
  Report Type: Spontaneous
  Country: IT (occurrence: IT)
  Receive Date: 20200514
  Receipt Date: 20200514
  Transmission Date: 20200714
  Serious: Yes (Other)
  Sender: FDA-Public Use
  Company Number: NVSC2020IT131461

PATIENT
  Age: 37 Year
  Sex: Male
  Weight: 61 kg

DRUGS (15)
  1. DESFERAL [Suspect]
     Active Substance: DEFEROXAMINE MESYLATE
     Dosage: 40 MG/KG
     Route: 065
     Dates: start: 20070929, end: 20071003
  2. FERRIPROX [Suspect]
     Active Substance: DEFERIPRONE
     Indication: THALASSAEMIA
     Dosage: 77 MG/KG
     Route: 048
     Dates: start: 19990101, end: 20050505
  3. FERRIPROX [Suspect]
     Active Substance: DEFERIPRONE
     Dosage: 50 MG/KG
     Route: 048
     Dates: start: 20070720, end: 20070821
  4. EUTIROX [Concomitant]
     Active Substance: LEVOTHYROXINE SODIUM
     Indication: HYPOTHYROIDISM
     Dosage: UNK
     Route: 065
     Dates: start: 19900101
  5. MENOTROPHIN [Concomitant]
     Active Substance: MENOTROPINS
     Indication: HYPOTHYROIDISM
     Dosage: UNK
     Route: 065
     Dates: start: 20070910
  6. DESFERAL [Suspect]
     Active Substance: DEFEROXAMINE MESYLATE
     Dosage: 35 MG/KG
     Route: 065
     Dates: start: 20070505, end: 20070716
  7. COLECALCIFEROL [Concomitant]
     Active Substance: CHOLECALCIFEROL
     Indication: OSTEOPOROSIS
     Dosage: UNK
     Route: 065
     Dates: start: 20060101
  8. DESFERAL [Suspect]
     Active Substance: DEFEROXAMINE MESYLATE
     Dosage: UNK
     Route: 065
     Dates: start: 20080205, end: 20080212
  9. FERRIPROX [Suspect]
     Active Substance: DEFERIPRONE
     Dosage: 50 MG/KG
     Route: 048
     Dates: start: 20080211, end: 20080211
  10. DESFERAL [Suspect]
     Active Substance: DEFEROXAMINE MESYLATE
     Dosage: 35 MG/KG
     Route: 065
     Dates: start: 20070720, end: 20070821
  11. DESFERAL [Suspect]
     Active Substance: DEFEROXAMINE MESYLATE
     Dosage: 40 MG/KG
     Route: 065
     Dates: start: 20080123, end: 20080131
  12. FERRIPROX [Suspect]
     Active Substance: DEFERIPRONE
     Dosage: 50 MG/KG
     Route: 048
     Dates: start: 20080123, end: 20080131
  13. FERRIPROX [Suspect]
     Active Substance: DEFERIPRONE
     Dosage: 50 MG/KG
     Route: 048
     Dates: start: 20070929, end: 20071003
  14. DESFERAL [Suspect]
     Active Substance: DEFEROXAMINE MESYLATE
     Indication: THALASSAEMIA
     Dosage: 40 MG/KG
     Route: 065
     Dates: start: 19990101, end: 20050505
  15. FERRIPROX [Suspect]
     Active Substance: DEFERIPRONE
     Dosage: 50 MG/KG
     Route: 048
     Dates: start: 20050505, end: 20070716

REACTIONS (6)
  - Neutropenia [Recovered/Resolved]
  - Neutropenia [Recovered/Resolved]
  - Neutrophil count decreased [Recovered/Resolved]
  - Neutropenia [Recovered/Resolved]
  - Neutrophil count decreased [Recovered/Resolved]
  - Neutropenia [Recovered/Resolved]

NARRATIVE: CASE EVENT DATE: 20070717
